FAERS Safety Report 5898203-2 (Version None)
Quarter: 2008Q3

REPORT INFORMATION
  Report Type: 
  Country: None (occurrence: None)
  Receive Date: 20080911
  Receipt Date: 20080529
  Transmission Date: 20090109
  Serious: Yes (Other)
  Sender: FDA-Public Use
  Company Number: 2008-0016470

PATIENT
  Age: 46 Year
  Sex: Male
  Weight: 80.3774 kg

DRUGS (2)
  1. ATRIPLA [Suspect]
     Indication: HIV INFECTION
     Dosage: 1 DOSAGE FORMS, 1 IN 1 D, ORAL
     Route: 048
     Dates: start: 20080207, end: 20080508
  2. MULTIVITAMIN (MULTIVITAMIN /00831701/) [Concomitant]

REACTIONS (2)
  - HEPATIC ENZYME INCREASED [None]
  - RASH ERYTHEMATOUS [None]
